FAERS Safety Report 6460232-8 (Version None)
Quarter: 2009Q4

REPORT INFORMATION
  Report Type: 
  Country: None (occurrence: None)
  Receive Date: 20091130
  Receipt Date: 20091123
  Transmission Date: 20100525
  Serious: Yes (Other)
  Sender: FDA-Public Use
  Company Number: GB-RANBAXY-2007RR-07244

PATIENT
  Sex: Female

DRUGS (3)
  1. GABAPENTIN [Suspect]
  2. MAXTREX [Suspect]
     Dosage: 10 MG, 1/WEEK
     Route: 048
  3. NEURONTIN [Suspect]
     Dosage: 600 MG, TID
     Route: 048

REACTIONS (3)
  - SEPSIS [None]
  - URINARY RETENTION [None]
  - URINARY TRACT INFECTION [None]
